FAERS Safety Report 7238525-6 (Version None)
Quarter: 2011Q1

REPORT INFORMATION
  Report Type: 
  Country: None (occurrence: None)
  Receive Date: 20110121
  Receipt Date: 20110114
  Transmission Date: 20110831
  Serious: Yes (Hospitalization)
  Sender: FDA-Public Use
  Company Number: US-JNJFOC-20110103804

PATIENT
  Sex: Female

DRUGS (5)
  1. ACTAVIS FENTANYL TRANSDEMAL SYSTEM [Suspect]
     Indication: PAIN
     Route: 062
  2. HYDROCODONE [Concomitant]
     Indication: PAIN
     Route: 048
  3. UNSPECIFIED FENTANYL [Suspect]
     Indication: PAIN
     Route: 062
  4. FENTANYL-100 [Suspect]
     Indication: PAIN
     Route: 062
  5. DURAGESIC-50 [Suspect]
     Indication: PAIN
     Route: 062

REACTIONS (6)
  - CERVICAL VERTEBRAL FRACTURE [None]
  - HYPERHIDROSIS [None]
  - THERAPEUTIC RESPONSE DECREASED [None]
  - EXOSTOSIS [None]
  - FALL [None]
  - PAIN [None]
